FAERS Safety Report 17368241 (Version 1)
Quarter: 2020Q1

REPORT INFORMATION
  Report Type: Spontaneous
  Country: US (occurrence: US)
  Receive Date: 20200204
  Receipt Date: 20200204
  Transmission Date: 20200409
  Serious: Yes (Other)
  Sender: FDA-Public Use
  Company Number: US-LANNETT COMPANY, INC.-US-2020LAN000024

PATIENT
  Age: 8 Year
  Sex: Male

DRUGS (3)
  1. LEVETIRACETAM. [Suspect]
     Active Substance: LEVETIRACETAM
     Indication: SEIZURE
     Dosage: 10 ML, BID
     Route: 048
  2. OXCARBAZEPINE. [Concomitant]
     Active Substance: OXCARBAZEPINE
     Indication: PRODUCT USED FOR UNKNOWN INDICATION
     Dosage: UNK
     Route: 065
  3. ZONISAMIDE. [Concomitant]
     Active Substance: ZONISAMIDE
     Indication: SEIZURE
     Dosage: 22.5 ML, QD, AT NIGHT
     Route: 048

REACTIONS (7)
  - Nasopharyngitis [Recovering/Resolving]
  - Feeling abnormal [Unknown]
  - Seizure [Recovered/Resolved]
  - Fall [Unknown]
  - Tooth injury [Unknown]
  - Anxiety [Unknown]
  - Incoherent [Unknown]

NARRATIVE: CASE EVENT DATE: 2019
